FAERS Safety Report 4307843-3 (Version None)
Quarter: 2004Q1

REPORT INFORMATION
  Report Type: 
  Country: None (occurrence: None)
  Receive Date: 20040226
  Receipt Date: 20030925
  Transmission Date: 20041129
  Serious: Yes (Hospitalization)
  Sender: FDA-Public Use
  Company Number: 2003178480US

PATIENT
  Sex: Female

DRUGS (3)
  1. CELEBREX [Suspect]
     Indication: OSTEOARTHRITIS
     Dosage: ORAL
     Route: 048
  2. AMITRIPTYLINE HCL [Concomitant]
  3. TYLENOL W/ CODEINE [Concomitant]

REACTIONS (3)
  - ABDOMINAL DISCOMFORT [None]
  - EATING DISORDER [None]
  - GASTROINTESTINAL HAEMORRHAGE [None]
